FAERS Safety Report 10334067 (Version 1)
Quarter: 2014Q3

REPORT INFORMATION
  Report Type: Spontaneous
  Country: US (occurrence: None)
  Receive Date: 20140721
  Receipt Date: 20140721
  Transmission Date: 20150326
  Serious: Yes (Other)
  Sender: FDA-Public Use
  Company Number: None

PATIENT
  Age: 83 Year
  Sex: Female
  Weight: 79.38 kg

DRUGS (1)
  1. BACLOFEN. [Suspect]
     Active Substance: BACLOFEN
     Indication: MUSCLE SPASMS
     Dosage: 1 TABLET Q 8 HRS THREE TIMES DAILY TAKEN BY MOUTH
     Route: 048
     Dates: start: 20140718, end: 20140719

REACTIONS (5)
  - Muscular weakness [None]
  - Hallucination [None]
  - Dysgeusia [None]
  - Muscle spasms [None]
  - Visual impairment [None]

NARRATIVE: CASE EVENT DATE: 20140718
